FAERS Safety Report 21242984 (Version 2)
Quarter: 2022Q3

REPORT INFORMATION
  Report Type: Spontaneous
  Country: BR (occurrence: BR)
  Receive Date: 20220823
  Receipt Date: 20220906
  Transmission Date: 20221027
  Serious: Yes (Hospitalization, Other)
  Sender: FDA-Public Use
  Company Number: BR-BAYER-2022A117055

PATIENT
  Age: 42 Year
  Sex: Female
  Weight: 85 kg

DRUGS (4)
  1. MIRENA [Suspect]
     Active Substance: LEVONORGESTREL
     Indication: Contraception
     Dosage: 20?G/DAY
     Route: 015
     Dates: start: 20220106
  2. TRAMADOL [Concomitant]
     Active Substance: TRAMADOL
     Dosage: UNK UNK, UNK
     Route: 042
     Dates: start: 20220730
  3. DIPIRONA SODICA [Concomitant]
     Dosage: 1 DF, UNK
     Route: 048
     Dates: start: 20220730
  4. BUSCOPAMINE [Concomitant]
     Indication: Abdominal pain
     Dosage: 1 DF, UNK
     Route: 048
     Dates: start: 20220730

REACTIONS (7)
  - Ectopic pregnancy with contraceptive device [Recovering/Resolving]
  - Ruptured ectopic pregnancy [None]
  - Intra-abdominal haemorrhage [Recovering/Resolving]
  - Drug ineffective [None]
  - Procedural pain [None]
  - Abdominal pain [Recovering/Resolving]
  - Dizziness [Recovering/Resolving]

NARRATIVE: CASE EVENT DATE: 20220106
